FAERS Safety Report 4391576-1 (Version None)
Quarter: 2004Q3

REPORT INFORMATION
  Report Type: 
  Country: None (occurrence: None)
  Receive Date: 20040701
  Receipt Date: 20040611
  Transmission Date: 20050211
  Serious: Yes (Other)
  Sender: FDA-Public Use
  Company Number: US_0406103666

PATIENT
  Age: 75 Year
  Sex: Female

DRUGS (2)
  1. EVISTA [Suspect]
  2. MIACALCIN [Concomitant]

REACTIONS (2)
  - HIP FRACTURE [None]
  - SPINAL COMPRESSION FRACTURE [None]
